FAERS Safety Report 5719578-0 (Version None)
Quarter: 2008Q2

REPORT INFORMATION
  Report Type: 
  Country: None (occurrence: None)
  Receive Date: 20080424
  Receipt Date: 20080411
  Transmission Date: 20081010
  Serious: Yes (Other)
  Sender: FDA-Public Use
  Company Number: CHPA2008US06225

PATIENT
  Age: 53 Year
  Sex: Female
  Weight: 55.8 kg

DRUGS (1)
  1. THERAFLU FLU AND SORE THROAT (NCH)(PHENIRAMINE MALEATE, PHENYLEPHRINE [Suspect]
     Indication: INFLUENZA
     Dosage: 1 DF, ONCE/SINGLE, ORAL
     Route: 048
     Dates: start: 20080326, end: 20080326

REACTIONS (9)
  - AGEUSIA [None]
  - ANOSMIA [None]
  - BURNING SENSATION [None]
  - DRUG HYPERSENSITIVITY [None]
  - EPISTAXIS [None]
  - MALAISE [None]
  - NASAL DISCOMFORT [None]
  - THROAT IRRITATION [None]
  - TONGUE DRY [None]
